FAERS Safety Report 17140877 (Version 1)
Quarter: 2019Q4

REPORT INFORMATION
  Report Type: Spontaneous
  Country: US (occurrence: US)
  Receive Date: 20191211
  Receipt Date: 20191211
  Transmission Date: 20200122
  Serious: No
  Sender: FDA-Public Use
  Company Number: US-BEH-2019110442

PATIENT
  Sex: Female

DRUGS (23)
  1. ASPIR LOW [Concomitant]
     Active Substance: ASPIRIN
  2. PERCOCET [OXYCODONE HYDROCHLORIDE;OXYCODONE TEREPHTHALATE;PARACETAMOL] [Concomitant]
     Active Substance: ACETAMINOPHEN\OXYCODONE HYDROCHLORIDE\OXYCODONE TEREPHTHALATE
  3. SULFASALAZINE. [Concomitant]
     Active Substance: SULFASALAZINE
  4. BETAMETHASON [BETAMETHASONE] [Concomitant]
     Active Substance: BETAMETHASONE
  5. NARATRIPTAN [Concomitant]
     Active Substance: NARATRIPTAN HYDROCHLORIDE
  6. MACROBID [CLARITHROMYCIN] [Concomitant]
     Active Substance: CLARITHROMYCIN
  7. DOXYCYCLINE. [Concomitant]
     Active Substance: DOXYCYCLINE
  8. VANCOMYCIN HCL [Concomitant]
     Active Substance: VANCOMYCIN HYDROCHLORIDE
  9. COLLAGENASE [Concomitant]
     Active Substance: COLLAGENASE CLOSTRIDIUM HISTOLYTICUM
  10. TOBRAMYCIN. [Concomitant]
     Active Substance: TOBRAMYCIN
  11. DICLOFENAC SODIUM. [Concomitant]
     Active Substance: DICLOFENAC SODIUM
  12. CLARINEX [Concomitant]
     Active Substance: DESLORATADINE
  13. REXULTI [Concomitant]
     Active Substance: BREXPIPRAZOLE
  14. ITRACONAZOLE. [Concomitant]
     Active Substance: ITRACONAZOLE
  15. TIZANIDINE HCL [Concomitant]
     Active Substance: TIZANIDINE HYDROCHLORIDE
  16. HIZENTRA [Suspect]
     Active Substance: HUMAN IMMUNOGLOBULIN G
     Dosage: UNK
     Route: 058
  17. HIZENTRA [Suspect]
     Active Substance: HUMAN IMMUNOGLOBULIN G
     Indication: IMMUNODEFICIENCY COMMON VARIABLE
     Dosage: 18 GRAM, QW
     Route: 058
     Dates: start: 201802
  18. METHOTREXATE. [Concomitant]
     Active Substance: METHOTREXATE
  19. CLINDAMYCIN HCL [Concomitant]
     Active Substance: CLINDAMYCIN HYDROCHLORIDE
  20. VYVANSE [Concomitant]
     Active Substance: LISDEXAMFETAMINE DIMESYLATE
  21. BACTRIM [Concomitant]
     Active Substance: SULFAMETHOXAZOLE\TRIMETHOPRIM
  22. CIPROFLOXACIN. [Concomitant]
     Active Substance: CIPROFLOXACIN
  23. AZITHROM [Concomitant]

REACTIONS (10)
  - Headache [Recovered/Resolved]
  - Blood urine present [Recovered/Resolved]
  - Urinary tract infection [Recovered/Resolved]
  - Red blood cells urine positive [Recovered/Resolved]
  - Fatigue [Recovered/Resolved]
  - Chills [Recovered/Resolved]
  - White blood cells urine positive [Recovered/Resolved]
  - Sinusitis [Recovered/Resolved]
  - pH urine abnormal [Recovered/Resolved]
  - Urine abnormality [Recovered/Resolved]
